FAERS Safety Report 5334940-6 (Version None)
Quarter: 2007Q2

REPORT INFORMATION
  Report Type: 
  Country: None (occurrence: None)
  Receive Date: 20070525
  Receipt Date: 20070517
  Transmission Date: 20071010
  Serious: Yes (Life-Threatening)
  Sender: FDA-Public Use
  Company Number: JP-JNJFOC-20070205479

PATIENT
  Sex: Male
  Weight: 65 kg

DRUGS (14)
  1. REMICADE [Suspect]
     Route: 042
  2. REMICADE [Suspect]
     Route: 042
  3. REMICADE [Suspect]
     Route: 042
  4. REMICADE [Suspect]
     Route: 042
  5. REMICADE [Suspect]
     Route: 042
  6. REMICADE [Suspect]
     Route: 042
  7. REMICADE [Suspect]
     Route: 042
  8. REMICADE [Suspect]
     Route: 042
  9. REMICADE [Suspect]
     Indication: CROHN'S DISEASE
     Route: 042
  10. PENTASA [Suspect]
     Indication: CROHN'S DISEASE
     Route: 048
  11. ENSURE [Suspect]
     Indication: NUTRITIONAL SUPPORT
     Route: 048
  12. MIYA BM [Suspect]
     Indication: FLATULENCE
     Route: 048
  13. LENDORMIN [Suspect]
     Indication: INSOMNIA
     Route: 048
  14. POSTERISAN [Suspect]
     Indication: ANAL INFLAMMATION

REACTIONS (1)
  - NEOPLASM MALIGNANT [None]
